FAERS Safety Report 13795488 (Version 3)
Quarter: 2017Q4

REPORT INFORMATION
  Report Type: Not Available
  Country: US (occurrence: US)
  Receive Date: 20170726
  Receipt Date: 20171026
  Transmission Date: 20180320
  Serious: No
  Sender: FDA-Public Use
  Company Number: US-NEUROCRINE BIOSCIENCES INC.-2017NBI00285

PATIENT
  Age: 51 Year
  Sex: Female
  Weight: 53.57 kg

DRUGS (10)
  1. INGREZZA [Suspect]
     Active Substance: VALBENAZINE
     Route: 048
     Dates: start: 20170713, end: 20170913
  2. INGREZZA [Suspect]
     Active Substance: VALBENAZINE
     Indication: TARDIVE DYSKINESIA
     Route: 048
     Dates: start: 20170706, end: 20170712
  3. CLIMARA [Concomitant]
     Active Substance: ESTRADIOL
  4. LAMOTRIGINE. [Concomitant]
     Active Substance: LAMOTRIGINE
  5. RISPERIDONE. [Concomitant]
     Active Substance: RISPERIDONE
  6. CLOZARIL [Suspect]
     Active Substance: CLOZAPINE
     Indication: PRODUCT USED FOR UNKNOWN INDICATION
  7. CLOZAPINE. [Concomitant]
     Active Substance: CLOZAPINE
  8. LEVOTHYROXINE. [Concomitant]
     Active Substance: LEVOTHYROXINE
  9. LITHIUM. [Concomitant]
     Active Substance: LITHIUM
  10. LORAZEPAM. [Concomitant]
     Active Substance: LORAZEPAM

REACTIONS (4)
  - Tremor [Recovered/Resolved]
  - Drug ineffective [None]
  - Balance disorder [Recovered/Resolved]
  - Somnolence [Unknown]

NARRATIVE: CASE EVENT DATE: 2017
